FAERS Safety Report 8964450 (Version 1)
Quarter: 2012Q4

REPORT INFORMATION
  Report Type: 
  Country: US (occurrence: US)
  Receive Date: 20121214
  Receipt Date: 20121214
  Transmission Date: 20130627
  Serious: No
  Sender: FDA-Public Use
  Company Number: US-GLAXOSMITHKLINE-A0992393A

PATIENT
  Age: 66 Year
  Sex: Male
  Weight: 86.4 kg

DRUGS (10)
  1. AVODART [Suspect]
     Indication: BENIGN PROSTATIC HYPERPLASIA
     Dosage: 1CAP Per day
     Route: 048
     Dates: start: 201104, end: 20120906
  2. SYNTHROID [Concomitant]
  3. BABY ASPIRIN [Concomitant]
  4. ADVAIR [Concomitant]
  5. SIMVASTATIN [Concomitant]
  6. SPIRIVA [Concomitant]
  7. FLOMAX [Concomitant]
  8. FOSAMAX [Concomitant]
  9. DEXTROMETHORPHAN [Concomitant]
  10. COZAAR [Concomitant]

REACTIONS (4)
  - Feminisation acquired [Not Recovered/Not Resolved]
  - Alopecia [Not Recovered/Not Resolved]
  - Blood luteinising hormone increased [Not Recovered/Not Resolved]
  - Blood follicle stimulating hormone increased [Not Recovered/Not Resolved]
